FAERS Safety Report 7031113-6 (Version None)
Quarter: 2010Q4

REPORT INFORMATION
  Report Type: 
  Country: None (occurrence: None)
  Receive Date: 20101001
  Receipt Date: 20100920
  Transmission Date: 20110411
  Serious: Yes (Death)
  Sender: FDA-Public Use
  Company Number: FR-GDP-10408933

PATIENT
  Sex: Female
  Weight: 53 kg

DRUGS (15)
  1. METVIXIA [Suspect]
     Indication: ACTINIC KERATOSIS
     Dosage: 1 DF 1 TUBE TOPICAL
     Route: 061
     Dates: start: 20100505
  2. METVIXIA [Suspect]
     Indication: BASAL CELL CARCINOMA
     Dosage: 1 DF 1 TUBE TOPICAL
     Route: 061
     Dates: start: 20100505
  3. IMIPENEM AND CILASTATIN [Concomitant]
  4. ACYCLOVIR SODIUM [Concomitant]
  5. CALCIUM FOLINATE [Concomitant]
  6. CALCIPARINE [Concomitant]
  7. CORTANCYL [Concomitant]
  8. ENDOXAN [Concomitant]
  9. ACTRAPID MC [Concomitant]
  10. NEXIUM [Concomitant]
  11. VITAMIN B-12 [Concomitant]
  12. OFLOCET [Concomitant]
  13. ACUPAN [Concomitant]
  14. HYDROCORTISONE [Concomitant]
  15. MORPHINE [Concomitant]

REACTIONS (10)
  - ADRENAL INSUFFICIENCY [None]
  - ANXIETY [None]
  - BILE DUCT STONE [None]
  - CARDIAC FAILURE [None]
  - GENERAL PHYSICAL HEALTH DETERIORATION [None]
  - HAEMOLYTIC ANAEMIA [None]
  - PANCREATOLITHIASIS [None]
  - RENAL FAILURE ACUTE [None]
  - RESPIRATORY FAILURE [None]
  - SEPTIC SHOCK [None]
